FAERS Safety Report 11485108 (Version 1)
Quarter: 2015Q3

REPORT INFORMATION
  Report Type: Spontaneous
  Country: US (occurrence: None)
  Receive Date: 20150909
  Receipt Date: 20150909
  Transmission Date: 20151125
  Serious: Yes (Disabling, Other)
  Sender: FDA-Public Use
  Company Number: None

PATIENT
  Age: 25 Year
  Sex: Male
  Weight: 136.08 kg

DRUGS (7)
  1. GEMFIBROZIL. [Concomitant]
     Active Substance: GEMFIBROZIL
  2. LOSARTAN POTASSIUM. [Concomitant]
     Active Substance: LOSARTAN POTASSIUM
  3. VITAMIN E [Concomitant]
     Active Substance: .ALPHA.-TOCOPHEROL
  4. CELECOXIB 200 MG CAPSULE GENERIC FOR CELEBREX [Suspect]
     Active Substance: CELECOXIB
     Indication: REITER^S SYNDROME
     Route: 048
     Dates: start: 20150727, end: 20150816
  5. CELEBREX [Concomitant]
     Active Substance: CELECOXIB
  6. ALLOPURINOL. [Concomitant]
     Active Substance: ALLOPURINOL
  7. D-3 [Concomitant]
     Active Substance: CHOLECALCIFEROL

REACTIONS (3)
  - Product quality issue [None]
  - Muscle spasms [None]
  - Joint warmth [None]

NARRATIVE: CASE EVENT DATE: 20150804
